FAERS Safety Report 7909892-2 (Version None)
Quarter: 2011Q4

REPORT INFORMATION
  Report Type: 
  Country: None (occurrence: None)
  Receive Date: 20111111
  Receipt Date: 20111111
  Transmission Date: 20120403
  Serious: Yes (Other)
  Sender: FDA-Public Use
  Company Number: CH-BAYER-2011-109088

PATIENT
  Age: 81 Year
  Sex: Male

DRUGS (5)
  1. TRAZODONE HCL [Suspect]
     Indication: DEPRESSION
     Dosage: 100 MG, QD
     Route: 048
     Dates: start: 20110712
  2. MIDAZOLAM HCL [Concomitant]
     Dosage: 7.5 MG, PRN
     Route: 048
     Dates: start: 20111017
  3. GINKGO [Suspect]
     Dosage: 1000 MG, QD
     Route: 048
  4. ASPIRIN [Suspect]
     Dosage: 100 MG, QD
     Route: 048
     Dates: start: 20080101
  5. XANAX [Concomitant]
     Dosage: 1 MG, PRN
     Route: 048
     Dates: start: 20090101

REACTIONS (1)
  - MOUTH HAEMORRHAGE [None]
